FAERS Safety Report 7743542-3 (Version None)
Quarter: 2011Q3

REPORT INFORMATION
  Report Type: 
  Country: None (occurrence: None)
  Receive Date: 20110912
  Receipt Date: 20110901
  Transmission Date: 20111222
  Serious: Yes (Hospitalization)
  Sender: FDA-Public Use
  Company Number: FR-JNJFOC-20110901661

PATIENT
  Age: 25 Year
  Sex: Female

DRUGS (6)
  1. RISPERDAL [Suspect]
     Indication: PRODUCT USED FOR UNKNOWN INDICATION
     Route: 048
     Dates: end: 20110728
  2. TETRAZEPAM [Suspect]
     Indication: ILL-DEFINED DISORDER
     Route: 048
     Dates: end: 20110728
  3. TERCIAN [Suspect]
     Indication: PRODUCT USED FOR UNKNOWN INDICATION
     Route: 048
     Dates: end: 20110728
  4. IMOVANE [Suspect]
     Indication: PRODUCT USED FOR UNKNOWN INDICATION
     Route: 048
     Dates: end: 20110728
  5. LEXOMIL [Suspect]
     Indication: PRODUCT USED FOR UNKNOWN INDICATION
     Route: 048
     Dates: end: 20110728
  6. ATARAX [Suspect]
     Indication: PRODUCT USED FOR UNKNOWN INDICATION
     Route: 048
     Dates: end: 20110728

REACTIONS (6)
  - MALAISE [None]
  - COMA [None]
  - PANCREATITIS [None]
  - DIABETIC KETOACIDOSIS [None]
  - OVERDOSE [None]
  - RENAL FAILURE ACUTE [None]
